FAERS Safety Report 16416772 (Version 2)
Quarter: 2019Q2

REPORT INFORMATION
  Report Type: Not Available
  Country: US (occurrence: US)
  Receive Date: 20190611
  Receipt Date: 20190625
  Transmission Date: 20190711
  Serious: Yes (Hospitalization)
  Sender: FDA-Public Use
  Company Number: US-NEUROCRINE BIOSCIENCES INC.-2019NBI01451

PATIENT
  Sex: Male

DRUGS (13)
  1. INGREZZA [Suspect]
     Active Substance: VALBENAZINE
     Route: 048
     Dates: start: 20180110, end: 20180205
  2. LITHIUM. [Suspect]
     Active Substance: LITHIUM
     Indication: BIPOLAR DISORDER
  3. LITHIUM. [Suspect]
     Active Substance: LITHIUM
     Dosage: AT NIGHT
  4. WARFARIN [Concomitant]
     Active Substance: WARFARIN
     Indication: ANTICOAGULANT THERAPY
     Dosage: CURRENTLY, 3 MG AND 4 MG EVERY OTHER NIGHT. THE DOSE CHANGES WEEKLY BASED ON INR LEVELS.
  5. INGREZZA [Suspect]
     Active Substance: VALBENAZINE
     Indication: TARDIVE DYSKINESIA
     Route: 048
     Dates: start: 20180102, end: 20180109
  6. SIMVASTATIN. [Concomitant]
     Active Substance: SIMVASTATIN
     Dosage: AT NIGHT
  7. CARVEDILOL. [Concomitant]
     Active Substance: CARVEDILOL
     Dosage: MORNING AND NIGHT
  8. LITHIUM. [Suspect]
     Active Substance: LITHIUM
     Dosage: AT NIGHT
  9. VESICARE [Concomitant]
     Active Substance: SOLIFENACIN SUCCINATE
     Indication: INCONTINENCE
  10. VITAMIN D3 [Concomitant]
     Active Substance: CHOLECALCIFEROL
     Indication: VITAMIN SUPPLEMENTATION
     Dosage: IN THE MORNING
  11. ALPRAZOLAM. [Concomitant]
     Active Substance: ALPRAZOLAM
  12. INGREZZA [Suspect]
     Active Substance: VALBENAZINE
     Dosage: AT NIGHT
     Route: 048
     Dates: start: 20180206
  13. ASPIRIN. [Concomitant]
     Active Substance: ASPIRIN
     Dosage: IN THE MORNING

REACTIONS (3)
  - Benign salivary gland neoplasm [Recovered/Resolved]
  - Tardive dyskinesia [Recovered/Resolved]
  - Gait disturbance [Recovering/Resolving]

NARRATIVE: CASE EVENT DATE: 2019
